FAERS Safety Report 12311159 (Version 2)
Quarter: 2016Q2

REPORT INFORMATION
  Report Type: Report from Study
  Country: CA (occurrence: CA)
  Receive Date: 20160427
  Receipt Date: 20160503
  Transmission Date: 20160815
  Serious: Yes (Hospitalization, Other)
  Sender: FDA-Public Use
  Company Number: CA-GILEAD-2016-0207401

PATIENT
  Age: 62 Year
  Sex: Male

DRUGS (3)
  1. LEDIPASVIR/SOFOSBUVIR [Suspect]
     Active Substance: LEDIPASVIR\SOFOSBUVIR
     Indication: HEPATITIS C
     Dosage: 1 DF, UNK
     Route: 048
     Dates: start: 20151104, end: 20160420
  2. CELEXA [Concomitant]
     Active Substance: CITALOPRAM HYDROBROMIDE
     Dosage: 10 MG, UNK
     Route: 048
  3. ATENOLOL. [Concomitant]
     Active Substance: ATENOLOL
     Dosage: 50 MG, UNK
     Route: 048

REACTIONS (8)
  - Disorientation [Unknown]
  - Muscle spasms [Not Recovered/Not Resolved]
  - Hypertension [Unknown]
  - Dysarthria [Not Recovered/Not Resolved]
  - Seizure [Unknown]
  - Tremor [Not Recovered/Not Resolved]
  - Gastrointestinal disorder [Unknown]
  - Tinea cruris [Unknown]

NARRATIVE: CASE EVENT DATE: 2016
